FAERS Safety Report 8201544-7 (Version None)
Quarter: 2012Q1

REPORT INFORMATION
  Report Type: 
  Country: None (occurrence: None)
  Receive Date: 20120312
  Receipt Date: 20120301
  Transmission Date: 20120608
  Serious: Yes (Hospitalization)
  Sender: FDA-Public Use
  Company Number: FR-GLAXOSMITHKLINE-B0785452A

PATIENT
  Age: 55 Year
  Sex: Female
  Weight: 80 kg

DRUGS (3)
  1. ARIXTRA [Suspect]
     Indication: THROMBOPHLEBITIS
     Dosage: 7.5MG PER DAY
     Route: 058
     Dates: start: 20111230, end: 20120101
  2. KETOPROFEN [Concomitant]
     Route: 050
  3. ACETAMINOPHEN [Concomitant]
     Dosage: 500MG THREE TIMES PER DAY

REACTIONS (2)
  - HAEMATOMA [None]
  - ANAEMIA [None]
